FAERS Safety Report 5324950-7 (Version None)
Quarter: 2007Q2

REPORT INFORMATION
  Report Type: 
  Country: None (occurrence: None)
  Receive Date: 20070510
  Receipt Date: 20070510
  Transmission Date: 20071010
  Serious: Yes (Hospitalization)
  Sender: FDA-Public Use
  Company Number: None

PATIENT
  Age: 85 Year
  Sex: Female
  Weight: 98.4 kg

DRUGS (1)
  1. HYDROMORPHONE HCL [Suspect]
     Indication: PAIN
     Dosage: 1 MG IV
     Route: 042
     Dates: start: 20070421, end: 20070421

REACTIONS (3)
  - CONVULSION [None]
  - CYANOSIS [None]
  - RESPIRATORY DISTRESS [None]
